FAERS Safety Report 9253815 (Version 1)
Quarter: 2013Q2

REPORT INFORMATION
  Report Type: Spontaneous
  Country: US (occurrence: US)
  Receive Date: 20130425
  Receipt Date: 20130425
  Transmission Date: 20140414
  Serious: No
  Sender: FDA-Public Use
  Company Number: US-PFIZER INC-2013128727

PATIENT
  Age: 52 Year
  Sex: Female

DRUGS (2)
  1. ZOLOFT [Suspect]
     Dosage: 100 MG, UNK
     Dates: end: 201303
  2. NEURONTIN [Suspect]
     Dosage: 300 MG, UNK
     Dates: end: 201303

REACTIONS (1)
  - Urticaria [Unknown]
